FAERS Safety Report 22345850 (Version 1)
Quarter: 2023Q2

REPORT INFORMATION
  Report Type: Spontaneous
  Country: US (occurrence: None)
  Receive Date: 20230518
  Receipt Date: 20230518
  Transmission Date: 20230721
  Serious: Yes (Hospitalization)
  Sender: FDA-Public Use
  Company Number: None

PATIENT
  Sex: Female

DRUGS (11)
  1. XOLAIR [Suspect]
     Active Substance: OMALIZUMAB
     Indication: Asthma
     Dosage: FREQUENCY : EVERY OTHER WEEK;?
     Route: 058
     Dates: start: 20200609
  2. ALBUTEROL AER HFA [Concomitant]
  3. BLACK COHOSH CAP [Concomitant]
  4. CALCIUM [Concomitant]
     Active Substance: CALCIUM
  5. CLONIDINE [Concomitant]
     Active Substance: CLONIDINE
  6. GABAPENTIN [Concomitant]
     Active Substance: GABAPENTIN
  7. HYDROXYZ HCL [Concomitant]
  8. MAGNESIUM CAP [Concomitant]
  9. SYMBICORT AER [Concomitant]
  10. UNITHROID [Concomitant]
     Active Substance: LEVOTHYROXINE SODIUM
  11. VITAMIN D [Concomitant]
     Active Substance: VITAMIN D NOS

REACTIONS (3)
  - Cerebrovascular accident [None]
  - Impaired quality of life [None]
  - Drug ineffective [None]
